FAERS Safety Report 9521379 (Version 1)
Quarter: 2013Q3

REPORT INFORMATION
  Report Type: Report from Study
  Country: CA (occurrence: CA)
  Receive Date: 20130913
  Receipt Date: 20130913
  Transmission Date: 20140515
  Serious: Yes (Hospitalization)
  Sender: FDA-Public Use
  Company Number: CA-JNJFOC-20130903552

PATIENT
  Age: 63 Year
  Sex: Female
  Weight: 52.5 kg

DRUGS (8)
  1. REMICADE [Suspect]
     Indication: RHEUMATOID ARTHRITIS
     Route: 042
     Dates: start: 20090904
  2. ASAPHEN [Concomitant]
     Dosage: ^ID^
     Route: 048
  3. PANTOLOC [Concomitant]
     Dosage: ^ID^
     Route: 048
  4. TYLENOL [Concomitant]
     Route: 048
  5. ATIVAN [Concomitant]
     Route: 048
  6. LIPITOR [Concomitant]
     Dosage: ^ID^
     Route: 048
  7. FOLIC ACID [Concomitant]
     Route: 048
  8. METHOTREXATE [Concomitant]
     Route: 058

REACTIONS (1)
  - Myocardial infarction [Unknown]
